FAERS Safety Report 9535531 (Version 2)
Quarter: 2013Q4

REPORT INFORMATION
  Report Type: Spontaneous
  Country: GR (occurrence: GR)
  Receive Date: 20130918
  Receipt Date: 20131123
  Transmission Date: 20140711
  Serious: Yes (Other)
  Sender: FDA-Public Use
  Company Number: GR-JNJFOC-20130904209

PATIENT
  Sex: Female

DRUGS (2)
  1. REGAINE 5% [Suspect]
     Route: 061
  2. REGAINE 5% [Suspect]
     Indication: ALOPECIA
     Route: 061

REACTIONS (3)
  - Hallucination [Recovered/Resolved]
  - Migraine [Recovered/Resolved]
  - Insomnia [Recovered/Resolved]
